FAERS Safety Report 7331982-6 (Version None)
Quarter: 2011Q1

REPORT INFORMATION
  Report Type: 
  Country: None (occurrence: None)
  Receive Date: 20110304
  Receipt Date: 20100625
  Transmission Date: 20110831
  Serious: Yes (Hospitalization, Other)
  Sender: FDA-Public Use
  Company Number: US-PFIZER INC-2010057706

PATIENT
  Sex: Female

DRUGS (14)
  1. XANAX [Concomitant]
     Dosage: 0.5 MG, AS NEEDED
  2. AMBIEN [Concomitant]
     Dosage: 5 MG, AS NEEDED
     Route: 048
  3. DECADRON [Concomitant]
     Dosage: 1 MG, DAILY
     Dates: start: 20090410
  4. PREVACID [Concomitant]
     Dosage: 30 MG, EVERY MORNING
  5. ROXANOL [Concomitant]
     Dosage: 5 MG, AS NEEDED
  6. DECADRON [Concomitant]
     Dosage: 0.5 MG, UNK
     Dates: start: 20090414, end: 20090415
  7. CLARITIN [Concomitant]
     Dosage: 10 MG, EVERY MORNING
  8. SOMA [Concomitant]
     Dosage: 350 MG, 2X/DAY
  9. PROZAC [Concomitant]
     Dosage: 20 MG, EVERY MORNING
  10. DECADRON [Concomitant]
     Dosage: 2 MG, 2X/DAY
     Dates: start: 20090402
  11. DECADRON [Concomitant]
     Dosage: 1 MG, 2X/DAY
     Dates: start: 20090406
  12. DILANTIN [Suspect]
     Indication: CONVULSION
     Dosage: 400 MG, 1X/DAY
     Route: 048
     Dates: start: 20090312, end: 20090422
  13. COLACE [Concomitant]
     Dosage: 250 MG, 2X/DAY
  14. ALBUTEROL [Concomitant]
     Indication: WHEEZING
     Dosage: UNK

REACTIONS (1)
  - STEVENS-JOHNSON SYNDROME [None]
